FAERS Safety Report 25450486 (Version 1)
Quarter: 2025Q2

REPORT INFORMATION
  Report Type: Spontaneous
  Country: US (occurrence: None)
  Receive Date: 20250617
  Receipt Date: 20250617
  Transmission Date: 20250717
  Serious: Yes (Hospitalization)
  Sender: FDA-CTU
  Company Number: None

PATIENT
  Sex: Male

DRUGS (1)
  1. TACROLIMUS [Suspect]
     Active Substance: TACROLIMUS
     Indication: Psoriasis
     Dosage: FREQUENCY : MONTHLY;?
     Route: 058
     Dates: start: 202505

REACTIONS (1)
  - Hip arthroplasty [None]
